FAERS Safety Report 4471756-7 (Version None)
Quarter: 2004Q4

REPORT INFORMATION
  Report Type: 
  Country: None (occurrence: None)
  Receive Date: 20041006
  Receipt Date: 20040927
  Transmission Date: 20050328
  Serious: Yes (Other)
  Sender: FDA-Public Use
  Company Number: 2004235728DE

PATIENT
  Age: 4 Year
  Sex: Female
  Weight: 17 kg

DRUGS (1)
  1. SOBELIN SOLUBILE   300/600/900 (CLINDAMYCIN) [Suspect]
     Indication: INFECTION
     Dosage: 225 MG, TID, IV
     Route: 042

REACTIONS (3)
  - EXANTHEM [None]
  - PRURITUS [None]
  - PYREXIA [None]
